FAERS Safety Report 25621266 (Version 2)
Quarter: 2025Q3

REPORT INFORMATION
  Report Type: Report from Study
  Country: CA (occurrence: CA)
  Receive Date: 20250730
  Receipt Date: 20250818
  Transmission Date: 20251021
  Serious: Yes (Other)
  Sender: NOVARTIS
  Company Number: CA-002147023-NVSC2025CA118109

PATIENT
  Sex: Female

DRUGS (2)
  1. KESIMPTA [Suspect]
     Active Substance: OFATUMUMAB
     Indication: Multiple sclerosis
     Dosage: 1 DOSAGE FORM, QMO
     Route: 058
     Dates: start: 20250722
  2. KESIMPTA [Suspect]
     Active Substance: OFATUMUMAB
     Indication: Relapsing-remitting multiple sclerosis
     Route: 058

REACTIONS (24)
  - Altered state of consciousness [Unknown]
  - Pyrexia [Recovered/Resolved]
  - Dyspnoea [Recovered/Resolved]
  - Headache [Recovered/Resolved]
  - Chills [Recovered/Resolved]
  - Myalgia [Recovered/Resolved]
  - Nausea [Recovered/Resolved]
  - Back pain [Recovered/Resolved]
  - Pain [Unknown]
  - Pelvic pain [Unknown]
  - Pain in extremity [Unknown]
  - Hyperhidrosis [Unknown]
  - Abdominal pain upper [Unknown]
  - Appetite disorder [Unknown]
  - Asthenia [Unknown]
  - Confusional state [Unknown]
  - Tremor [Unknown]
  - Dyspepsia [Unknown]
  - Abdominal discomfort [Unknown]
  - Fatigue [Unknown]
  - Blood pressure abnormal [Unknown]
  - Body temperature abnormal [Unknown]
  - Heart rate abnormal [Unknown]
  - Hypersensitivity [Unknown]
